FAERS Safety Report 15954678 (Version 2)
Quarter: 2019Q1

REPORT INFORMATION
  Report Type: Report from Study
  Country: None (occurrence: US)
  Receive Date: 20190213
  Receipt Date: 20190327
  Transmission Date: 20190417
  Serious: Yes (Hospitalization, Other)
  Sender: FDA-Public Use
  Company Number: US-ABBVIE-19K-163-2661930-00

PATIENT
  Age: 58 Year
  Sex: Female

DRUGS (1)
  1. HUMIRA [Suspect]
     Active Substance: ADALIMUMAB
     Indication: CROHN^S DISEASE
     Route: 058

REACTIONS (10)
  - Drug ineffective [Unknown]
  - Depression [Unknown]
  - Crohn^s disease [Unknown]
  - Chronic obstructive pulmonary disease [Unknown]
  - Blood potassium abnormal [Unknown]
  - Ureteritis [Unknown]
  - Blood sodium abnormal [Unknown]
  - Renal cyst [Unknown]
  - Nephrolithiasis [Recovered/Resolved]
  - Tubulointerstitial nephritis [Unknown]

NARRATIVE: CASE EVENT DATE: 201811
